FAERS Safety Report 6892181-5 (Version None)
Quarter: 2010Q3

REPORT INFORMATION
  Report Type: 
  Country: None (occurrence: None)
  Receive Date: 20100731
  Receipt Date: 20080209
  Transmission Date: 20110219
  Serious: No
  Sender: FDA-Public Use
  Company Number: US-PFIZER INC-2007104637

PATIENT
  Sex: Male
  Weight: 95.3 kg

DRUGS (6)
  1. NEURONTIN [Suspect]
  2. CHANTIX [Interacting]
     Indication: SMOKING CESSATION THERAPY
     Dates: start: 20070101, end: 20070101
  3. GABAPENTIN [Interacting]
     Indication: NEUROPATHY PERIPHERAL
     Dosage: 6 EVERY 1 DAYS
  4. ACETAMINOPHEN AND HYDROCODONE BITARTRATE [Interacting]
     Indication: NEUROPATHY PERIPHERAL
     Dosage: 10MG/325MG
  5. ENALAPRIL [Concomitant]
     Indication: HYPERTENSION
  6. DIURETICS [Concomitant]
     Indication: FLUID RETENTION

REACTIONS (4)
  - BODY HEIGHT DECREASED [None]
  - DRUG INEFFECTIVE [None]
  - DRUG INTERACTION [None]
  - PAIN IN EXTREMITY [None]
